FAERS Safety Report 9628304 (Version 2)
Quarter: 2013Q4

REPORT INFORMATION
  Report Type: Spontaneous
  Country: ES (occurrence: ES)
  Receive Date: 20131017
  Receipt Date: 20131031
  Transmission Date: 20140711
  Serious: No
  Sender: FDA-Public Use
  Company Number: ES-BRISTOL-MYERS SQUIBB COMPANY-19590850

PATIENT
  Age: 69 Year
  Sex: Female

DRUGS (2)
  1. MITOTANE [Suspect]
     Indication: ADRENOCORTICAL CARCINOMA
  2. HYDROCORTISONE [Suspect]

REACTIONS (1)
  - Vertigo [Unknown]
